FAERS Safety Report 8307908-5 (Version None)
Quarter: 2012Q2

REPORT INFORMATION
  Report Type: 
  Country: None (occurrence: None)
  Receive Date: 20120424
  Receipt Date: 20120419
  Transmission Date: 20120825
  Serious: No
  Sender: FDA-Public Use
  Company Number: US-PFIZER INC-2012098478

PATIENT
  Sex: Female
  Weight: 77 kg

DRUGS (4)
  1. AMLODIPINE BESYLATE [Suspect]
     Dosage: 10 MG DAILY
     Dates: start: 20120401, end: 20120401
  2. LOSARTAN [Concomitant]
     Indication: HYPERTENSION
     Dosage: 100 MG, DAILY
  3. AMLODIPINE BESYLATE [Suspect]
     Indication: HYPERTENSION
     Dosage: 10 MG, DAILY
     Dates: end: 20120101
  4. AMLODIPINE BESYLATE [Suspect]
     Indication: HYPERTENSION
     Dosage: UNK
     Dates: end: 20120401

REACTIONS (6)
  - BLOOD PRESSURE INCREASED [None]
  - DYSPNOEA [None]
  - AGITATION [None]
  - PRESYNCOPE [None]
  - HEART RATE INCREASED [None]
  - MOVEMENT DISORDER [None]
